FAERS Safety Report 7378001-3 (Version None)
Quarter: 2011Q1

REPORT INFORMATION
  Report Type: 
  Country: None (occurrence: None)
  Receive Date: 20110328
  Receipt Date: 20110323
  Transmission Date: 20110831
  Serious: Yes (Hospitalization)
  Sender: FDA-Public Use
  Company Number: SE-PFIZER INC-2011028866

PATIENT
  Age: 56 Year
  Sex: Male

DRUGS (6)
  1. BEHEPAN [Concomitant]
     Dosage: UNK MG, UNK
  2. OMEPRAZOLE [Concomitant]
     Dosage: UNK
  3. TAZOCIN [Suspect]
     Indication: INFECTION
     Dosage: UNK
     Dates: start: 20101111, end: 20101202
  4. OXYNORM [Concomitant]
     Dosage: UNK MG, UNK
  5. CALCICHEW-D3 [Concomitant]
     Dosage: UNK
  6. DURAGESIC-100 [Concomitant]
     Dosage: UNK UCI, UNK

REACTIONS (2)
  - LEUKOPENIA [None]
  - PARAESTHESIA [None]
